FAERS Safety Report 18430907 (Version 1)
Quarter: 2020Q4

REPORT INFORMATION
  Report Type: Report from Study
  Country: IN (occurrence: IN)
  Receive Date: 20201027
  Receipt Date: 20201027
  Transmission Date: 20210114
  Serious: Yes (Other)
  Sender: FDA-Public Use
  Company Number: NVSC2020IN139756

PATIENT
  Age: 32 Year
  Sex: Female

DRUGS (2)
  1. TASIGNA [Suspect]
     Active Substance: NILOTINIB
     Indication: CHRONIC MYELOID LEUKAEMIA
     Dosage: 400 MG, BID
     Route: 048
     Dates: start: 20190301, end: 20200920
  2. TASIGNA [Suspect]
     Active Substance: NILOTINIB
     Dosage: 400 MG, BID
     Route: 048
     Dates: start: 20201011

REACTIONS (4)
  - Pyrexia [Unknown]
  - Asthenia [Unknown]
  - Product dose omission issue [Unknown]
  - Typhoid fever [Unknown]

NARRATIVE: CASE EVENT DATE: 202004
